FAERS Safety Report 15556192 (Version 1)
Quarter: 2018Q4

REPORT INFORMATION
  Report Type: Spontaneous
  Country: US (occurrence: US)
  Receive Date: 20181026
  Receipt Date: 20181026
  Transmission Date: 20190205
  Serious: No
  Sender: FDA-Public Use
  Company Number: US-ALLERGAN-1822949US

PATIENT
  Sex: Female

DRUGS (2)
  1. ALPHAGAN P [Suspect]
     Active Substance: BRIMONIDINE TARTRATE
     Dosage: 2 GTT, BID (QAM AND QPM)
     Route: 047
     Dates: start: 2014
  2. ALPHAGAN P [Suspect]
     Active Substance: BRIMONIDINE TARTRATE
     Indication: GLAUCOMA
     Dosage: 2 GTT, BID (QAM AND QPM)
     Route: 047
     Dates: start: 2014

REACTIONS (5)
  - Inappropriate schedule of product administration [Unknown]
  - Drug ineffective [Unknown]
  - Product dropper issue [Unknown]
  - Product packaging quantity issue [Unknown]
  - Incorrect dose administered [Unknown]
